FAERS Safety Report 5796392-1 (Version None)
Quarter: 2008Q2

REPORT INFORMATION
  Report Type: 
  Country: None (occurrence: None)
  Receive Date: 20080630
  Receipt Date: 20080630
  Transmission Date: 20081010
  Serious: Yes (Other)
  Sender: FDA-Public Use
  Company Number: None

PATIENT
  Sex: Female
  Weight: 56.6996 kg

DRUGS (1)
  1. ZONISAMIDE [Suspect]
     Indication: MIGRAINE
     Dosage: 25 MG. -8 TABS-TOTAL 200 MG. ONCE/DAY PO
     Route: 048
     Dates: start: 20050915, end: 20070217

REACTIONS (17)
  - ACTIVITIES OF DAILY LIVING IMPAIRED [None]
  - ARTHRALGIA [None]
  - BACK PAIN [None]
  - BLOOD PRESSURE FLUCTUATION [None]
  - CARPAL TUNNEL SYNDROME [None]
  - DISTURBANCE IN ATTENTION [None]
  - HYPERTENSION [None]
  - HYPOAESTHESIA [None]
  - JOINT RANGE OF MOTION DECREASED [None]
  - JOINT STIFFNESS [None]
  - MEMORY IMPAIRMENT [None]
  - MOVEMENT DISORDER [None]
  - MUSCULOSKELETAL STIFFNESS [None]
  - NECK PAIN [None]
  - PAIN [None]
  - PAIN IN EXTREMITY [None]
  - PARAESTHESIA [None]
